FAERS Safety Report 5339107-3 (Version None)
Quarter: 2007Q2

REPORT INFORMATION
  Report Type: 
  Country: None (occurrence: None)
  Receive Date: 20070530
  Receipt Date: 20070518
  Transmission Date: 20071010
  Serious: Yes (Other)
  Sender: FDA-Public Use
  Company Number: AU-PFIZER INC-2007040832

PATIENT
  Age: 82 Year
  Sex: Female

DRUGS (8)
  1. LIPITOR [Suspect]
  2. MACUVISION [Concomitant]
     Indication: MACULAR DEGENERATION
  3. TRITACE [Concomitant]
     Indication: HYPERTENSION
  4. ASTRIX [Concomitant]
  5. ANTIOXIDANTS [Concomitant]
  6. GLUCOSAMINE [Concomitant]
  7. FISH OIL [Concomitant]
  8. EVENING PRIMROSE OIL [Concomitant]

REACTIONS (1)
  - ARTHRITIS [None]
